FAERS Safety Report 15762367 (Version 2)
Quarter: 2019Q1

REPORT INFORMATION
  Report Type: Spontaneous
  Country: BR (occurrence: BR)
  Receive Date: 20181226
  Receipt Date: 20190102
  Transmission Date: 20190417
  Serious: Yes (Other)
  Sender: FDA-Public Use
  Company Number: BR-PFIZER INC-2018495296

PATIENT
  Age: 30 Year
  Sex: Female

DRUGS (2)
  1. LORAX//LORAZEPAM [Suspect]
     Active Substance: LORAZEPAM
     Indication: HEART RATE INCREASED
     Dosage: 6 MG, DAILY (3 TABLETS OF 2MG PER DAY)
     Dates: end: 201809
  2. LORAX//LORAZEPAM [Suspect]
     Active Substance: LORAZEPAM
     Indication: NERVOUSNESS
     Dosage: 2 MG, DAILY (1 TABLET OF 2 MG PER DAY)
     Dates: start: 1978

REACTIONS (7)
  - Diabetes mellitus [Recovered/Resolved]
  - Depressed mood [Recovered/Resolved]
  - Product use issue [Not Recovered/Not Resolved]
  - Blood cholesterol increased [Recovered/Resolved]
  - Drug dependence [Not Recovered/Not Resolved]
  - Drug ineffective [Recovered/Resolved]
  - Intentional product use issue [Not Recovered/Not Resolved]

NARRATIVE: CASE EVENT DATE: 1978
